FAERS Safety Report 19547431 (Version 1)
Quarter: 2021Q3

REPORT INFORMATION
  Report Type: Report from Study
  Country: US (occurrence: US)
  Receive Date: 20210715
  Receipt Date: 20210715
  Transmission Date: 20211014
  Serious: Yes (Hospitalization)
  Sender: FDA-Public Use
  Company Number: US-JNJFOC-20210713693

PATIENT
  Age: 65 Year
  Sex: Male
  Weight: 82.5 kg

DRUGS (5)
  1. DEXAMETHASONE. [Suspect]
     Active Substance: DEXAMETHASONE
     Indication: PLASMA CELL MYELOMA
     Dosage: LAST ADMINISTERED ON 14?JUN?2021, TOTAL DOSE ADMINISTERED WAS 80 MG.
     Route: 065
     Dates: start: 20210607
  2. ZOMETA [Suspect]
     Active Substance: ZOLEDRONIC ACID
     Indication: PLASMA CELL MYELOMA
     Route: 065
     Dates: start: 20210614
  3. LENALIDOMIDE [Suspect]
     Active Substance: LENALIDOMIDE
     Dosage: LAST ADMINISTERED ON 25?JUN?2021, TOTAL DOSE ADMINISTERED WAS 400 MG.
     Route: 065
  4. DARATUMUMAB [Suspect]
     Active Substance: DARATUMUMAB
     Indication: PLASMA CELL MYELOMA
     Dosage: LAST ADMINISTERED ON 14?JUN?2021, TOTAL DOSE ADMINISTERED WAS 3600 MG.
     Route: 058
     Dates: start: 20210607
  5. LENALIDOMIDE [Suspect]
     Active Substance: LENALIDOMIDE
     Indication: PLASMA CELL MYELOMA
     Dosage: TOTAL DOSE ADMINISTERED WAS 300 MG.
     Route: 065
     Dates: start: 20210607, end: 20210618

REACTIONS (2)
  - Febrile neutropenia [Recovered/Resolved]
  - Muscular weakness [Recovered/Resolved]

NARRATIVE: CASE EVENT DATE: 20210619
